FAERS Safety Report 8742841 (Version 3)
Quarter: 2012Q4

REPORT INFORMATION
  Report Type: 
  Country: US (occurrence: US)
  Receive Date: 20120824
  Receipt Date: 20121123
  Transmission Date: 20130627
  Serious: No
  Sender: FDA-Public Use
  Company Number: US-PFIZER INC-2012207074

PATIENT
  Age: 64 Year
  Sex: Male
  Weight: 105 kg

DRUGS (9)
  1. CELEBREX [Suspect]
     Indication: ARTHRITIS
     Dosage: 200 mg, as needed
     Route: 048
     Dates: start: 20120731, end: 20120803
  2. CELEBREX [Suspect]
     Indication: PAIN
  3. VITAMIN D3 [Concomitant]
     Dosage: 4000 unit Cap
  4. VITAMIN B COMPLEX [Concomitant]
     Dosage: UNK
  5. MAGNESIUM [Concomitant]
     Dosage: 200 mg Tab, UNK
  6. GLUCOSAMINE [Concomitant]
  7. DILTIAZEM [Concomitant]
     Dosage: 30 mg, UNK
  8. PROPRANOLOL [Concomitant]
     Dosage: 40 mg, UNK
  9. TRAMADOL [Concomitant]
     Dosage: 50 mg, UNK

REACTIONS (1)
  - Muscle spasms [Recovered/Resolved]
